FAERS Safety Report 10009897 (Version 1)
Quarter: 2014Q1

REPORT INFORMATION
  Report Type: Spontaneous
  Country: US (occurrence: US)
  Receive Date: 20140312
  Receipt Date: 20140312
  Transmission Date: 20141002
  Serious: No
  Sender: FDA-Public Use
  Company Number: US-INCYTE CORPORATION-2013IN000393

PATIENT
  Age: 76 Year
  Sex: Male

DRUGS (7)
  1. JAKAFI [Suspect]
     Indication: POLYCYTHAEMIA VERA
     Dosage: 20 MG, BID
     Route: 048
     Dates: start: 20130123
  2. ASPIRIN [Concomitant]
     Dosage: 81 MG, UNK
  3. LOSARTAN [Concomitant]
  4. SIMVASTATIN [Concomitant]
  5. MULTIVITAMINS, PLAIN [Concomitant]
  6. CALCIUM [Concomitant]
  7. METOPROLOL [Concomitant]

REACTIONS (2)
  - Platelet count increased [Unknown]
  - White blood cell count increased [Unknown]
